FAERS Safety Report 12393627 (Version 2)
Quarter: 2016Q4

REPORT INFORMATION
  Report Type: Spontaneous
  Country: US (occurrence: US)
  Receive Date: 20160523
  Receipt Date: 20161026
  Transmission Date: 20170207
  Serious: No
  Sender: FDA-Public Use
  Company Number: US-BAYER-2016-098676

PATIENT
  Age: 59 Year
  Sex: Female
  Weight: 57.14 kg

DRUGS (5)
  1. MIRALAX [Suspect]
     Active Substance: POLYETHYLENE GLYCOL 3350
     Indication: CONSTIPATION
     Dosage: UNK UNK, BID
     Route: 048
     Dates: start: 201603
  2. SPIRONOLACTONE. [Concomitant]
     Active Substance: SPIRONOLACTONE
  3. ZETIA [Concomitant]
     Active Substance: EZETIMIBE
  4. LINZESS [Concomitant]
     Active Substance: LINACLOTIDE
  5. MIRALAX [Suspect]
     Active Substance: POLYETHYLENE GLYCOL 3350
     Indication: CONSTIPATION
     Dosage: 1 DF, 1 WEEK

REACTIONS (4)
  - Product use issue [None]
  - Product use issue [None]
  - Prescribed underdose [None]
  - Off label use [None]

NARRATIVE: CASE EVENT DATE: 201603
